FAERS Safety Report 8883389 (Version 6)
Quarter: 2014Q3

REPORT INFORMATION
  Report Type: Spontaneous
  Country: US (occurrence: US)
  Receive Date: 20121102
  Receipt Date: 20140926
  Transmission Date: 20150326
  Serious: No
  Sender: FDA-Public Use
  Company Number: US-009507513-1210USA012639

PATIENT
  Sex: Male
  Weight: 80.27 kg

DRUGS (3)
  1. PROPECIA [Suspect]
     Active Substance: FINASTERIDE
     Indication: ANDROGENETIC ALOPECIA
     Dosage: 1 MG, QD
     Route: 048
     Dates: start: 200307, end: 20090814
  2. PROPECIA [Suspect]
     Active Substance: FINASTERIDE
     Dosage: 1 MG, QD
     Route: 048
     Dates: start: 20110124, end: 20110513
  3. MENS ROGAINE UNSCENTED FORMULA [Concomitant]
     Active Substance: MINOXIDIL
     Indication: ANDROGENETIC ALOPECIA
     Dosage: UNK, PRN
     Dates: start: 20040917

REACTIONS (19)
  - Spermatozoa progressive motility decreased [Unknown]
  - Prostatic calcification [Unknown]
  - Stress at work [Unknown]
  - Arthropathy [Not Recovered/Not Resolved]
  - Anxiety [Unknown]
  - Libido decreased [Unknown]
  - Infertility [Unknown]
  - Retrograde ejaculation [Unknown]
  - Seborrhoeic dermatitis [Unknown]
  - Acne [Unknown]
  - Sexual dysfunction [Not Recovered/Not Resolved]
  - Cognitive disorder [Not Recovered/Not Resolved]
  - Oligospermia [Unknown]
  - Hyperprolactinaemia [Unknown]
  - Erectile dysfunction [Unknown]
  - Depression [Unknown]
  - Epididymal disorder [Unknown]
  - Melanocytic naevus [Unknown]
  - Nocturia [Unknown]

NARRATIVE: CASE EVENT DATE: 20051103
